FAERS Safety Report 6760603-6 (Version None)
Quarter: 2010Q2

REPORT INFORMATION
  Report Type: 
  Country: None (occurrence: None)
  Receive Date: 20100608
  Receipt Date: 20100527
  Transmission Date: 20101027
  Serious: Yes (Life-Threatening, Other)
  Sender: FDA-Public Use
  Company Number: US-PFIZER INC-2010048573

PATIENT
  Sex: Male
  Weight: 168.1 kg

DRUGS (5)
  1. SOMATROPIN [Suspect]
     Indication: HYPOPITUITARISM
     Dosage: 0.2 MG, 1X/DAY
     Dates: start: 20100101
  2. SYNTHROID [Concomitant]
     Dosage: UNK
     Route: 048
     Dates: start: 19950101
  3. CYMBALTA [Concomitant]
     Dosage: UNK
     Route: 048
  4. ALLOPURINOL [Concomitant]
     Dosage: UNK
  5. ANDROGEL [Concomitant]
     Dosage: UNK
     Route: 050
     Dates: start: 20070101

REACTIONS (1)
  - DEPRESSION [None]
